FAERS Safety Report 11009086 (Version 1)
Quarter: 2015Q2

REPORT INFORMATION
  Report Type: Spontaneous
  Country: US (occurrence: None)
  Receive Date: 20150409
  Receipt Date: 20150409
  Transmission Date: 20150821
  Serious: Yes (Life-Threatening, Disabling, Other)
  Sender: FDA-Public Use
  Company Number: None

PATIENT
  Age: 39 Year
  Sex: Female
  Weight: 46.72 kg

DRUGS (5)
  1. GABA [Concomitant]
     Active Substance: .GAMMA.-AMINOBUTYRIC ACID
  2. P-5-P [Concomitant]
  3. VALIUM [Concomitant]
     Active Substance: DIAZEPAM
  4. CLONAZEPAM. [Suspect]
     Active Substance: CLONAZEPAM
     Indication: ANXIETY DISORDER
     Dosage: 1-2 TABS ONCE DAILY TAKEN BY MOUTH
     Route: 048
  5. DIAZEPAM. [Concomitant]
     Active Substance: DIAZEPAM

REACTIONS (2)
  - Blood pressure increased [None]
  - Drug withdrawal syndrome [None]

NARRATIVE: CASE EVENT DATE: 20141229
